FAERS Safety Report 4784922-8 (Version None)
Quarter: 2005Q3

REPORT INFORMATION
  Report Type: 
  Country: None (occurrence: None)
  Receive Date: 20050928
  Receipt Date: 20050916
  Transmission Date: 20060218
  Serious: Yes (Other)
  Sender: FDA-Public Use
  Company Number: 2005131271

PATIENT
  Age: 17 Year
  Sex: Female
  Weight: 54.4316 kg

DRUGS (2)
  1. RELPAX [Suspect]
     Indication: AURA
     Dosage: ORAL
     Route: 048
     Dates: start: 20050915
  2. TOPAMAX [Concomitant]

REACTIONS (3)
  - ANGLE CLOSURE GLAUCOMA [None]
  - MYDRIASIS [None]
  - VISION BLURRED [None]
